FAERS Safety Report 22290313 (Version 2)
Quarter: 2023Q2

REPORT INFORMATION
  Report Type: Report from Study
  Country: US (occurrence: US)
  Receive Date: 20230505
  Receipt Date: 20230512
  Transmission Date: 20230722
  Serious: Yes (Death)
  Sender: FDA-Public Use
  Company Number: US-DSJP-DSU-2023-107324

PATIENT
  Sex: Female

DRUGS (2)
  1. ENHERTU [Suspect]
     Active Substance: FAM-TRASTUZUMAB DERUXTECAN-NXKI
     Indication: Pancreatic carcinoma
     Dosage: 321.92 MG, ONCE EVERY 3 WK
     Route: 042
     Dates: start: 20230201, end: 2023
  2. ENHERTU [Suspect]
     Active Substance: FAM-TRASTUZUMAB DERUXTECAN-NXKI
     Dosage: 270 MG, ONCE EVERY 3 WK
     Route: 042
     Dates: start: 2023, end: 2023

REACTIONS (4)
  - Death [Fatal]
  - Off label use [Not Recovered/Not Resolved]
  - Hospice care [Unknown]
  - Therapy cessation [Unknown]

NARRATIVE: CASE EVENT DATE: 20230101
